FAERS Safety Report 9288156 (Version 2)
Quarter: 2013Q4

REPORT INFORMATION
  Report Type: Report from Study
  Country: CN (occurrence: CN)
  Receive Date: 20130514
  Receipt Date: 20131023
  Transmission Date: 20140711
  Serious: Yes (Hospitalization)
  Sender: FDA-Public Use
  Company Number: CN-ROCHE-1203673

PATIENT
  Age: 56 Year
  Sex: Female

DRUGS (2)
  1. PEGASYS [Suspect]
     Indication: HEPATITIS C
     Route: 058
     Dates: start: 20120622, end: 201307
  2. RIBAVIRIN [Concomitant]
     Indication: HEPATITIS C
     Route: 065
     Dates: start: 20120615

REACTIONS (5)
  - Lumbar spinal stenosis [Unknown]
  - Lymphadenopathy [Unknown]
  - Hepatic steatosis [Unknown]
  - Arthralgia [Unknown]
  - Lymphadenopathy [Unknown]
